FAERS Safety Report 9441840 (Version 1)
Quarter: 2013Q3

REPORT INFORMATION
  Report Type: Spontaneous
  Country: KR (occurrence: None)
  Receive Date: 20130801
  Receipt Date: 20130801
  Transmission Date: 20140515
  Serious: Yes (Other)
  Sender: FDA-Public Use
  Company Number: 130247

PATIENT
  Age: 61 Year
  Sex: Male

DRUGS (1)
  1. GOLYTELY [Suspect]
     Indication: COLONOSCOPY
     Route: 048

REACTIONS (5)
  - Vomiting [None]
  - Chest pain [None]
  - Dyspnoea [None]
  - Abdominal tenderness [None]
  - Pulmonary haemorrhage [None]
